FAERS Safety Report 13102429 (Version 1)
Quarter: 2017Q1

REPORT INFORMATION
  Report Type: Spontaneous
  Country: US (occurrence: US)
  Receive Date: 20170110
  Receipt Date: 20170110
  Transmission Date: 20170428
  Serious: No
  Sender: FDA-Public Use
  Company Number: US-ALLERGAN-1665689US

PATIENT
  Age: 69 Year
  Sex: Female
  Weight: 58.96 kg

DRUGS (3)
  1. PRED FORTE [Suspect]
     Active Substance: PREDNISOLONE ACETATE
     Dosage: 6 GTT, QD
     Route: 047
     Dates: start: 20160707, end: 20160721
  2. PRED FORTE [Suspect]
     Active Substance: PREDNISOLONE ACETATE
     Dosage: 6 GTT, QD
     Route: 047
     Dates: start: 20160622, end: 20160707
  3. PRED FORTE [Suspect]
     Active Substance: PREDNISOLONE ACETATE
     Indication: TRABECULECTOMY
     Dosage: 6 GTT, QD
     Route: 047
     Dates: start: 20160721

REACTIONS (3)
  - Eye discharge [Unknown]
  - Product quality issue [Unknown]
  - Drug ineffective [Unknown]
